FAERS Safety Report 9659135 (Version 1)
Quarter: 2013Q4

REPORT INFORMATION
  Report Type: Spontaneous
  Country: NL (occurrence: NL)
  Receive Date: 20131031
  Receipt Date: 20131031
  Transmission Date: 20140711
  Serious: Yes (Hospitalization, Other)
  Sender: FDA-Public Use
  Company Number: NL-009507513-1310NLD013824

PATIENT
  Age: 29 Year
  Sex: Female

DRUGS (1)
  1. IMPLANON NXT [Suspect]
     Dosage: UNK
     Route: 058
     Dates: start: 20120920, end: 20131009

REACTIONS (6)
  - General anaesthesia [Unknown]
  - Nerve injury [Not Recovered/Not Resolved]
  - Implant site swelling [Unknown]
  - Device deployment issue [Unknown]
  - Medical device complication [Recovered/Resolved with Sequelae]
  - Metrorrhagia [Unknown]
